FAERS Safety Report 5226385-4 (Version None)
Quarter: 2007Q1

REPORT INFORMATION
  Report Type: 
  Country: None (occurrence: None)
  Receive Date: 20061201
  Receipt Date: 20061027
  Transmission Date: 20070707
  Serious: No
  Sender: FDA-Public Use
  Company Number: US200610004691

PATIENT
  Age: 62 Year
  Sex: Female

DRUGS (7)
  1. CYMBALTA [Suspect]
     Indication: PAIN
     Dosage: SEE IMAGE
     Dates: start: 20061004
  2. ALLEGRA [Concomitant]
  3. NEXIUM [Concomitant]
  4. MAXZIDE [Concomitant]
  5. ASPIRIN [Concomitant]
  6. SYNTHROID [Concomitant]
  7. BENADRYL ^PARKE DAVIS^ /ISR/ (DIPHENHYDRAMINE HYDROCHLORIDE) [Concomitant]

REACTIONS (19)
  - ANOREXIA [None]
  - BACK PAIN [None]
  - BLOOD PRESSURE INCREASED [None]
  - BOWEL MOVEMENT IRREGULARITY [None]
  - CRYING [None]
  - DEPRESSION [None]
  - DYSPNOEA [None]
  - EARLY MORNING AWAKENING [None]
  - FATIGUE [None]
  - FEELING ABNORMAL [None]
  - HEADACHE [None]
  - HEART RATE INCREASED [None]
  - HYPERHIDROSIS [None]
  - INSOMNIA [None]
  - NAUSEA [None]
  - PAIN IN JAW [None]
  - THINKING ABNORMAL [None]
  - TREMOR [None]
  - VISION BLURRED [None]
